FAERS Safety Report 14686674 (Version 1)
Quarter: 2018Q1

REPORT INFORMATION
  Report Type: Spontaneous
  Country: US (occurrence: US)
  Receive Date: 20180327
  Receipt Date: 20180327
  Transmission Date: 20180509
  Serious: No
  Sender: FDA-Public Use
  Company Number: US-TARO-2018TAR00125

PATIENT
  Sex: Female
  Weight: 68.27 kg

DRUGS (3)
  1. METRONIDAZOLE GEL USP, 1% [Suspect]
     Active Substance: METRONIDAZOLE
     Indication: DERMATITIS
     Dosage: ^SMALL AMOUNT,^ 1X/DAY
     Route: 061
     Dates: end: 2018
  2. METRONIDAZOLE GEL USP, 1% [Suspect]
     Active Substance: METRONIDAZOLE
     Dosage: ^SMALL AMOUNT,^ 1X/DAY
     Route: 061
     Dates: start: 2018
  3. METRONIDAZOLE GEL USP, 1% [Suspect]
     Active Substance: METRONIDAZOLE
     Dosage: ^SMALL AMOUNT,^ 1X/DAY
     Route: 061
     Dates: start: 2017

REACTIONS (4)
  - Malabsorption from application site [Not Recovered/Not Resolved]
  - Off label use [Not Recovered/Not Resolved]
  - Application site pain [Not Recovered/Not Resolved]
  - Product quality issue [Not Recovered/Not Resolved]

NARRATIVE: CASE EVENT DATE: 2017
